FAERS Safety Report 6292888-7 (Version None)
Quarter: 2009Q3

REPORT INFORMATION
  Report Type: 
  Country: None (occurrence: None)
  Receive Date: 20090731
  Receipt Date: 20090728
  Transmission Date: 20100115
  Serious: Yes (Death, Hospitalization, Other)
  Sender: FDA-Public Use
  Company Number: PHHY2009GB04862

PATIENT
  Sex: Female

DRUGS (4)
  1. CLOZARIL [Suspect]
     Indication: SCHIZOPHRENIA
     Dosage: 375 MG DAILY
     Route: 048
     Dates: start: 19990414
  2. METFORMIN [Concomitant]
     Indication: DIABETES MELLITUS
     Dosage: 1.5 G DAILY
  3. SIMVASTATIN [Concomitant]
     Indication: HYPERLIPIDAEMIA
     Route: 048
  4. INSULIN [Concomitant]
     Indication: DIABETES MELLITUS
     Route: 058

REACTIONS (8)
  - ABDOMINAL DISTENSION [None]
  - ASPIRATION [None]
  - BRONCHOPNEUMONIA [None]
  - CARDIO-RESPIRATORY ARREST [None]
  - DIABETES MELLITUS [None]
  - FALL [None]
  - FLATULENCE [None]
  - VOMITING [None]
